FAERS Safety Report 19814083 (Version 6)
Quarter: 2022Q1

REPORT INFORMATION
  Report Type: Report from Study
  Country: US (occurrence: US)
  Receive Date: 20210909
  Receipt Date: 20220307
  Transmission Date: 20220424
  Serious: No
  Sender: FDA-Public Use
  Company Number: NVSC2021US204433

PATIENT
  Sex: Female

DRUGS (4)
  1. ENTRESTO [Suspect]
     Active Substance: SACUBITRIL\VALSARTAN
     Indication: Product used for unknown indication
     Dosage: 1 DF (24/26 MG), BID
     Route: 048
  2. ENTRESTO [Suspect]
     Active Substance: SACUBITRIL\VALSARTAN
     Dosage: 200 MG, BID
     Route: 048
  3. SPIRONOLACTONE [Concomitant]
     Active Substance: SPIRONOLACTONE
     Indication: Product used for unknown indication
     Route: 065
  4. AMLODIPINE [Concomitant]
     Active Substance: AMLODIPINE BESYLATE
     Indication: Product used for unknown indication
     Route: 065

REACTIONS (18)
  - Sensitive skin [Unknown]
  - Dry skin [Unknown]
  - Weight decreased [Unknown]
  - Inflammation [Unknown]
  - Back pain [Unknown]
  - Dyspnoea [Unknown]
  - Arthralgia [Unknown]
  - Depressed mood [Unknown]
  - Sensitivity to weather change [Unknown]
  - Feeling cold [Unknown]
  - Decreased appetite [Unknown]
  - Heart rate decreased [Unknown]
  - Malaise [Unknown]
  - Clumsiness [Unknown]
  - Anxiety [Unknown]
  - Fatigue [Unknown]
  - Pruritus [Unknown]
  - Product dose omission issue [Unknown]
